FAERS Safety Report 12170208 (Version 3)
Quarter: 2016Q2

REPORT INFORMATION
  Report Type: Spontaneous
  Country: US (occurrence: US)
  Receive Date: 20160311
  Receipt Date: 20160426
  Transmission Date: 20160815
  Serious: Yes (Hospitalization, Other)
  Sender: FDA-Public Use
  Company Number: US-BEH-2016059481

PATIENT
  Sex: Female

DRUGS (24)
  1. FOLIC ACID. [Concomitant]
     Active Substance: FOLIC ACID
  2. METFORMIN [Concomitant]
     Active Substance: METFORMIN HYDROCHLORIDE
     Indication: DIABETES MELLITUS
  3. SINGULAIR [Concomitant]
     Active Substance: MONTELUKAST SODIUM
  4. ALBUTEROL. [Concomitant]
     Active Substance: ALBUTEROL
     Dosage: NEBULIZER
  5. NORVASC [Concomitant]
     Active Substance: AMLODIPINE BESYLATE
  6. SEROQUEL [Concomitant]
     Active Substance: QUETIAPINE FUMARATE
  7. HIZENTRA [Suspect]
     Active Substance: HUMAN IMMUNOGLOBULIN G
     Dosage: SEP-2015
  8. ADVAIR HFA [Concomitant]
     Active Substance: FLUTICASONE PROPIONATE\SALMETEROL XINAFOATE
  9. CELEBREX [Concomitant]
     Active Substance: CELECOXIB
  10. IPRATROPIUM BROMIDE. [Concomitant]
     Active Substance: IPRATROPIUM BROMIDE
     Route: 045
  11. ZOCOR [Concomitant]
     Active Substance: SIMVASTATIN
     Indication: BLOOD CHOLESTEROL
  12. OXYGEN. [Concomitant]
     Active Substance: OXYGEN
     Indication: SLEEP APNOEA SYNDROME
     Dosage: AT NIGHT
  13. HIZENTRA [Suspect]
     Active Substance: HUMAN IMMUNOGLOBULIN G
     Indication: IMMUNODEFICIENCY COMMON VARIABLE
     Dosage: START DATE 2015
  14. HIZENTRA [Suspect]
     Active Substance: HUMAN IMMUNOGLOBULIN G
     Dosage: START DATE 5-6 YEARS AGO
  15. MEDICAL MARIJUANA [Concomitant]
     Active Substance: CANNABIS SATIVA SUBSP. INDICA TOP
     Indication: RHEUMATOID ARTHRITIS
  16. XANAX [Concomitant]
     Active Substance: ALPRAZOLAM
  17. HIZENTRA [Suspect]
     Active Substance: HUMAN IMMUNOGLOBULIN G
     Dosage: JUN 2015
  18. FLONASE [Concomitant]
     Active Substance: FLUTICASONE PROPIONATE
  19. METHOTREXATE [Concomitant]
     Active Substance: METHOTREXATE
  20. OMEPRAZOLE. [Concomitant]
     Active Substance: OMEPRAZOLE
  21. TRILEPTAL [Concomitant]
     Active Substance: OXCARBAZEPINE
     Indication: EPILEPSY
  22. INSULIN [Concomitant]
     Active Substance: INSULIN NOS
  23. ALBUTEROL. [Concomitant]
     Active Substance: ALBUTEROL
  24. POTASSIUM CHLORIDE. [Concomitant]
     Active Substance: POTASSIUM CHLORIDE

REACTIONS (11)
  - Small intestinal resection [Unknown]
  - Small intestinal obstruction [Unknown]
  - Pathogen resistance [Unknown]
  - Resuscitation [Unknown]
  - Blood immunoglobulin G decreased [Unknown]
  - Sinus operation [Unknown]
  - Small intestinal obstruction [Unknown]
  - Cerebral thrombosis [Unknown]
  - Vomiting [Unknown]
  - Cystitis klebsiella [Unknown]
  - Intestinal obstruction [Unknown]

NARRATIVE: CASE EVENT DATE: 2012
